FAERS Safety Report 10172868 (Version 1)
Quarter: 2014Q2

REPORT INFORMATION
  Report Type: Spontaneous
  Country: DK (occurrence: DK)
  Receive Date: 20140515
  Receipt Date: 20140515
  Transmission Date: 20141212
  Serious: Yes (Other)
  Sender: FDA-Public Use
  Company Number: DK-JNJFOC-20140504463

PATIENT
  Age: 69 Year
  Sex: Male

DRUGS (6)
  1. SIMPONI [Suspect]
     Indication: CONNECTIVE TISSUE DISORDER
     Dosage: ACTUAL DOSE : 50 MG
     Route: 058
     Dates: start: 20130702, end: 20140101
  2. TRADOLAN [Concomitant]
     Indication: PAIN
     Route: 065
  3. PARACETAMOL [Concomitant]
     Indication: PAIN
     Route: 065
  4. ANCOZAN [Concomitant]
     Indication: HYPERTENSION
     Route: 065
  5. MAXIDEX (DEXAMETHASONE) [Concomitant]
     Route: 065
  6. PREDNISOLON [Concomitant]
     Indication: CONNECTIVE TISSUE DISORDER
     Route: 065

REACTIONS (5)
  - Hypersensitivity vasculitis [Recovering/Resolving]
  - Injection site rash [Recovering/Resolving]
  - Injection site erythema [Recovering/Resolving]
  - Rash pruritic [Unknown]
  - Off label use [Unknown]
